FAERS Safety Report 8401577-1 (Version None)
Quarter: 2012Q2

REPORT INFORMATION
  Report Type: 
  Country: None (occurrence: None)
  Receive Date: 20120601
  Receipt Date: 20120524
  Transmission Date: 20120825
  Serious: Yes (Other)
  Sender: FDA-Public Use
  Company Number: US-JNJFOC-20120502975

PATIENT
  Sex: Female
  Weight: 96.16 kg

DRUGS (13)
  1. AN UNKNOWN MEDICATION [Concomitant]
     Indication: ASTHMA
     Dosage: AS NEEDED
     Route: 055
  2. PRILOSEC [Concomitant]
     Indication: GASTRIC DISORDER
     Dosage: AS NEEDED
     Route: 048
  3. XANAX [Concomitant]
     Indication: ANXIETY
     Dosage: THREE TIMES A DAY AS NEEDED
     Route: 048
  4. FENTANYL-100 [Suspect]
     Indication: ARTHRITIS
     Route: 062
     Dates: start: 20120201
  5. COMBIVENT [Concomitant]
     Indication: ASTHMA
     Dosage: 2 EVERY 4 HOURS INHALATION
     Route: 055
     Dates: start: 20050101
  6. CYMBALTA [Concomitant]
     Indication: NEUROPATHY PERIPHERAL
     Dosage: AS NEEDED
     Route: 048
     Dates: start: 20100101
  7. UNKNOWN MEDICATION [Concomitant]
     Indication: BREAKTHROUGH PAIN
     Dosage: 5-500 MG THRICE A DAY AS NEEDED
  8. VASOTEC [Concomitant]
     Indication: HYPERTENSION
     Route: 048
     Dates: start: 20080101
  9. NAPROXEN [Concomitant]
     Indication: INFLAMMATION
     Dosage: AS NEEDED
     Route: 048
  10. SINGULAIR [Concomitant]
     Indication: ASTHMA
     Route: 048
  11. VICODIN [Concomitant]
     Indication: BREAKTHROUGH PAIN
     Dosage: 5-500 MG THRICE A DAY AS NEEDED
     Route: 048
  12. ZOCOR [Concomitant]
     Indication: HYPERTENSION
     Route: 048
     Dates: start: 20080101
  13. NEURONTIN [Concomitant]
     Indication: NEURALGIA
     Route: 048
     Dates: start: 20110101

REACTIONS (5)
  - DRUG INEFFECTIVE [None]
  - PRODUCT QUALITY ISSUE [None]
  - WRONG TECHNIQUE IN DRUG USAGE PROCESS [None]
  - NEUROPATHY PERIPHERAL [None]
  - INAPPROPRIATE SCHEDULE OF DRUG ADMINISTRATION [None]
